FAERS Safety Report 5688943-2 (Version None)
Quarter: 2008Q1

REPORT INFORMATION
  Report Type: 
  Country: None (occurrence: None)
  Receive Date: 20080331
  Receipt Date: 20080218
  Transmission Date: 20080703
  Serious: Yes (Death)
  Sender: FDA-Public Use
  Company Number: FR-ROCHE-430467

PATIENT
  Sex: Male

DRUGS (4)
  1. APRANAX [Suspect]
     Route: 048
     Dates: start: 20050418, end: 20050418
  2. EFFEXOR [Concomitant]
     Route: 048
     Dates: start: 20050418, end: 20050418
  3. ETHANOL [Concomitant]
  4. TETRAZEPAM [Concomitant]

REACTIONS (2)
  - DRUG ABUSE [None]
  - DRUG TOXICITY [None]
